FAERS Safety Report 8091427-8 (Version None)
Quarter: 2012Q1

REPORT INFORMATION
  Report Type: 
  Country: None (occurrence: None)
  Receive Date: 20120129
  Receipt Date: 20111107
  Transmission Date: 20120608
  Serious: No
  Sender: FDA-Public Use
  Company Number: PR-ABBOTT-11P-131-0859715-00

PATIENT
  Sex: Male
  Weight: 98.064 kg

DRUGS (3)
  1. ALTACE [Concomitant]
     Indication: PRODUCT USED FOR UNKNOWN INDICATION
     Route: 048
  2. AVALIDE [Concomitant]
     Indication: PRODUCT USED FOR UNKNOWN INDICATION
     Dosage: 300/25MG DAILY
     Route: 048
  3. HUMIRA [Suspect]
     Indication: PSORIASIS
     Dosage: 1 PEN
     Route: 058
     Dates: start: 20110714

REACTIONS (3)
  - BREAST SWELLING [None]
  - PSORIASIS [None]
  - BREAST PAIN [None]
